FAERS Safety Report 17649355 (Version 1)
Quarter: 2020Q2

REPORT INFORMATION
  Report Type: Spontaneous
  Country: US (occurrence: US)
  Receive Date: 20200408
  Receipt Date: 20200408
  Transmission Date: 20200713
  Serious: Yes (Other)
  Sender: FDA-Public Use
  Company Number: US-BOIRON INC.-2020BOR00102

PATIENT
  Sex: Female

DRUGS (1)
  1. YEASTAWAY [HOMEOPATHICS] [Suspect]
     Active Substance: HOMEOPATHICS
     Indication: PRODUCT USED FOR UNKNOWN INDICATION
     Dosage: UNK

REACTIONS (4)
  - Haemorrhage [Unknown]
  - Pain [Unknown]
  - Dysuria [Unknown]
  - Drug ineffective [Unknown]
